FAERS Safety Report 13058146 (Version 3)
Quarter: 2017Q1

REPORT INFORMATION
  Report Type: Spontaneous
  Country: DE (occurrence: DE)
  Receive Date: 20161223
  Receipt Date: 20170117
  Transmission Date: 20170428
  Serious: Yes (Hospitalization, Other)
  Sender: FDA-Public Use
  Company Number: DE-009507513-1611DEU006977

PATIENT
  Age: 57 Year
  Sex: Female
  Weight: 45 kg

DRUGS (21)
  1. COLISTIN [Concomitant]
     Active Substance: COLISTIN
     Dosage: UNK
     Dates: start: 20160905, end: 20160918
  2. ERTAPENEM SODIUM [Suspect]
     Active Substance: ERTAPENEM SODIUM
     Dosage: UNK
     Dates: start: 20160623, end: 20160624
  3. AMIODARONE [Suspect]
     Active Substance: AMIODARONE
     Indication: TACHYARRHYTHMIA
     Dosage: UNK
     Dates: start: 201611
  4. MEROPENEM. [Concomitant]
     Active Substance: MEROPENEM
     Dosage: UNK
     Dates: start: 20160805, end: 20160815
  5. TIGECYCLINE. [Concomitant]
     Active Substance: TIGECYCLINE
     Dosage: UNK
     Dates: start: 20160627, end: 20160720
  6. CEFTRIAXONE. [Concomitant]
     Active Substance: CEFTRIAXONE
     Dosage: UNK
     Dates: start: 20160831, end: 20160915
  7. MEROPENEM. [Concomitant]
     Active Substance: MEROPENEM
     Dosage: UNK
     Dates: start: 20160624, end: 20160712
  8. MEROPENEM. [Concomitant]
     Active Substance: MEROPENEM
     Dosage: UNK
     Dates: start: 20160907, end: 20160915
  9. VORICONAZOLE. [Concomitant]
     Active Substance: VORICONAZOLE
     Dosage: UNK
     Dates: start: 20160730, end: 20160830
  10. LINEZOLID. [Concomitant]
     Active Substance: LINEZOLID
     Dosage: UNK
     Route: 048
     Dates: start: 20160913, end: 20160920
  11. CASPOFUNGIN ACETATE. [Suspect]
     Active Substance: CASPOFUNGIN ACETATE
  12. PIPERACILLIN AND TAZOBACTAM [Concomitant]
     Active Substance: PIPERACILLIN SODIUM\TAZOBACTAM SODIUM
     Dosage: UNK
     Dates: start: 20160803, end: 20160815
  13. COLISTIN [Concomitant]
     Active Substance: COLISTIN
     Dosage: UNK
     Dates: start: 20160809, end: 20160815
  14. ZERBAXA [Suspect]
     Active Substance: CEFTOLOZANE SULFATE\TAZOBACTAM SODIUM
     Indication: PATHOGEN RESISTANCE
     Dosage: HALF A BOTTLE, THREE TIMES DAILY
     Route: 041
     Dates: start: 20161109, end: 20161121
  15. DIGITOXIN [Suspect]
     Active Substance: DIGITOXIN
     Indication: TACHYARRHYTHMIA
     Dosage: UNK
     Dates: start: 201611
  16. COLISTIN [Concomitant]
     Active Substance: COLISTIN
     Dosage: UNK
     Dates: start: 20160720, end: 20160807
  17. MOXIFLOXACIN HYDROCHLORIDE. [Suspect]
     Active Substance: MOXIFLOXACIN HYDROCHLORIDE
     Dosage: UNK
     Dates: start: 20161104, end: 20161109
  18. FOSFOMYCIN [Concomitant]
     Active Substance: FOSFOMYCIN
     Dosage: UNK
     Dates: start: 20160720, end: 20160728
  19. FOSFOMYCIN [Concomitant]
     Active Substance: FOSFOMYCIN
     Dosage: UNK
     Dates: start: 20160905, end: 20160918
  20. AMIKACIN [Concomitant]
     Active Substance: AMIKACIN
     Dosage: UNK
     Dates: start: 20160730, end: 20160830
  21. CLEXANE (ENOXAPARIN SODIUM) [Suspect]
     Active Substance: ENOXAPARIN SODIUM
     Indication: TACHYARRHYTHMIA
     Dosage: UNK
     Dates: start: 201611

REACTIONS (22)
  - Colon gangrene [Unknown]
  - Respiratory failure [Unknown]
  - Seizure [Unknown]
  - Gastrointestinal haemorrhage [Unknown]
  - Pneumonia [Unknown]
  - Fistula of small intestine [Unknown]
  - Pancreatic duct stenosis [Unknown]
  - Bile duct stenosis [Unknown]
  - Electrolyte imbalance [Unknown]
  - Cerebrovascular accident [Unknown]
  - Arrhythmia supraventricular [Unknown]
  - Cholecystitis infective [Unknown]
  - Pancreatic necrosis [Unknown]
  - Pancreatic fistula [Unknown]
  - Atrial fibrillation [Unknown]
  - Coagulopathy [Unknown]
  - Multiple-drug resistance [Unknown]
  - Tachyarrhythmia [Unknown]
  - Angiodysplasia [Unknown]
  - Drug effect incomplete [Not Recovered/Not Resolved]
  - Sepsis [Unknown]
  - Renal failure [Unknown]

NARRATIVE: CASE EVENT DATE: 2016
